FAERS Safety Report 19116724 (Version 1)
Quarter: 2021Q2

REPORT INFORMATION
  Report Type: Spontaneous
  Country: RO (occurrence: RO)
  Receive Date: 20210409
  Receipt Date: 20210409
  Transmission Date: 20210717
  Serious: Yes (Hospitalization)
  Sender: FDA-Public Use
  Company Number: RO-ELI_LILLY_AND_COMPANY-RO202103014406

PATIENT
  Age: 53 Year
  Sex: Male

DRUGS (2)
  1. PACLITAXEL. [Concomitant]
     Active Substance: PACLITAXEL
     Indication: GASTRIC NEOPLASM
  2. CYRAMZA [Suspect]
     Active Substance: RAMUCIRUMAB
     Indication: GASTRIC NEOPLASM
     Dosage: UNK, UNKNOWN
     Route: 065

REACTIONS (4)
  - Polyneuropathy [Unknown]
  - Leukopenia [Unknown]
  - Asthenia [Unknown]
  - Abdominal pain [Unknown]
